FAERS Safety Report 17749496 (Version 1)
Quarter: 2020Q2

REPORT INFORMATION
  Report Type: Spontaneous
  Country: US (occurrence: US)
  Receive Date: 20200506
  Receipt Date: 20200506
  Transmission Date: 20200714
  Serious: No
  Sender: FDA-Public Use
  Company Number: US-ELI_LILLY_AND_COMPANY-US202005001192

PATIENT
  Sex: Male

DRUGS (8)
  1. HUMALOG KWIKPEN [Suspect]
     Active Substance: INSULIN LISPRO
     Indication: TYPE 2 DIABETES MELLITUS
     Dosage: 35 U, UNKNOWN(30-35 UNITS PER MEAL)
     Route: 058
     Dates: start: 2010
  2. HUMALOG KWIKPEN [Suspect]
     Active Substance: INSULIN LISPRO
     Dosage: 35 U, UNKNOWN(30-35 UNITS PER MEAL)
     Route: 058
  3. HUMALOG KWIKPEN [Suspect]
     Active Substance: INSULIN LISPRO
     Indication: TYPE 2 DIABETES MELLITUS
     Dosage: 35 U, UNKNOWN(30-35 UNITS PER MEAL)
     Route: 058
     Dates: start: 2010
  4. HUMALOG KWIKPEN [Suspect]
     Active Substance: INSULIN LISPRO
     Dosage: 35 U, UNKNOWN(30-35 UNITS PER MEAL)
     Route: 058
  5. HUMALOG KWIKPEN [Suspect]
     Active Substance: INSULIN LISPRO
     Dosage: 35 U, UNKNOWN(30-35 UNITS PER MEAL)
     Route: 058
  6. HUMALOG KWIKPEN [Suspect]
     Active Substance: INSULIN LISPRO
     Indication: TYPE 2 DIABETES MELLITUS
     Dosage: 35 U, UNKNOWN(30-35 UNITS PER MEAL)
     Route: 058
     Dates: start: 2010
  7. HUMALOG KWIKPEN [Suspect]
     Active Substance: INSULIN LISPRO
     Dosage: 35 U, UNKNOWN(30-35 UNITS PER MEAL)
     Route: 058
  8. LANTUS [Concomitant]
     Active Substance: INSULIN GLARGINE
     Indication: TYPE 2 DIABETES MELLITUS
     Dosage: 100 U, DAILY

REACTIONS (1)
  - Visual impairment [Unknown]
